FAERS Safety Report 6152654-X (Version None)
Quarter: 2009Q2

REPORT INFORMATION
  Report Type: 
  Country: None (occurrence: None)
  Receive Date: 20090413
  Receipt Date: 20090408
  Transmission Date: 20091009
  Serious: Yes (Death)
  Sender: FDA-Public Use
  Company Number: IE-ROCHE-626724

PATIENT
  Age: 34 Year
  Sex: Male

DRUGS (7)
  1. RIVOTRIL [Suspect]
     Dosage: FREQUENCY: TWO TID
     Route: 065
     Dates: start: 20050802
  2. SEROQUEL [Suspect]
     Route: 065
     Dates: start: 20070523
  3. ZYPREXA [Suspect]
     Route: 065
     Dates: start: 20070208
  4. EPILIM CHRONO [Suspect]
     Indication: POST-TRAUMATIC EPILEPSY
     Dosage: FREQUENCY: TWO BID
     Route: 065
     Dates: start: 20040525
  5. TRAMADOL HCL [Suspect]
     Route: 065
     Dates: start: 20060616
  6. XANAX [Suspect]
     Indication: ANXIETY
     Dosage: FREQUENCY: TWO BID
     Route: 065
     Dates: start: 20030826
  7. ZOPICLONE [Suspect]
     Indication: ANXIETY
     Dosage: DRUG NAME REPORTED AS ZOPITAN.  FREQUENCY: TWO NOCTE
     Route: 065
     Dates: start: 20050802

REACTIONS (1)
  - PULMONARY EMBOLISM [None]
